FAERS Safety Report 25390749 (Version 1)
Quarter: 2025Q2

REPORT INFORMATION
  Report Type: Spontaneous
  Country: US (occurrence: None)
  Receive Date: 20250603
  Receipt Date: 20250603
  Transmission Date: 20250716
  Serious: Yes (Other)
  Sender: FDA-CTU
  Company Number: None

PATIENT
  Age: 73 Year
  Sex: Male

DRUGS (2)
  1. GAMMAGARD [Suspect]
     Active Substance: HUMAN IMMUNOGLOBULIN G
     Dosage: OTHER FREQUENCY : Q 4WKS;?
     Dates: start: 20250509
  2. KEFLEX [Suspect]
     Active Substance: CEPHALEXIN

REACTIONS (4)
  - Cellulitis [None]
  - Nephrolithiasis [None]
  - Thrombosis [None]
  - Infusion site pain [None]

NARRATIVE: CASE EVENT DATE: 20250603
